FAERS Safety Report 6292842-5 (Version None)
Quarter: 2009Q3

REPORT INFORMATION
  Report Type: 
  Country: None (occurrence: None)
  Receive Date: 20090731
  Receipt Date: 20090722
  Transmission Date: 20100115
  Serious: Yes (Other)
  Sender: FDA-Public Use
  Company Number: GB-ELI_LILLY_AND_COMPANY-GB200907004964

PATIENT
  Age: 78 Year
  Sex: Male
  Weight: 75.29 kg

DRUGS (9)
  1. HUMALOG MIX 75/25 [Suspect]
     Route: 058
  2. ASPIRIN [Concomitant]
  3. ATORVASTATIN [Concomitant]
  4. BETA BLOCKING AGENTS [Concomitant]
  5. FINASTERIDE [Concomitant]
  6. FLOMAXTRA XL [Concomitant]
  7. ANTI-ASTHMATICS [Concomitant]
  8. LEVOCETIRIZINE DIHYDROCHLORIDE [Concomitant]
  9. WARFARIN SODIUM [Concomitant]

REACTIONS (3)
  - INJECTION SITE PRURITUS [None]
  - NAUSEA [None]
  - VOMITING [None]
